FAERS Safety Report 15487913 (Version 1)
Quarter: 2018Q4

REPORT INFORMATION
  Report Type: Spontaneous
  Country: US (occurrence: US)
  Receive Date: 20181011
  Receipt Date: 20181011
  Transmission Date: 20190205
  Serious: Yes (Other)
  Sender: FDA-Public Use
  Company Number: US-SA-2018SA278310

PATIENT
  Age: 67 Year
  Sex: Female
  Weight: 61 kg

DRUGS (9)
  1. ADRIAMYCIN [Concomitant]
     Active Substance: DOXORUBICIN HYDROCHLORIDE
  2. DAUNORUBICIN [Concomitant]
     Active Substance: DAUNORUBICIN
  3. COMPAZINE [PROCHLORPERAZINE MALEATE] [Concomitant]
  4. TAXOTERE [Suspect]
     Active Substance: DOCETAXEL
     Indication: BREAST CANCER FEMALE
     Dosage: 123 MG, QOW
     Route: 042
     Dates: start: 20090520, end: 20090520
  5. NEOSAR [Concomitant]
     Active Substance: CYCLOPHOSPHAMIDE
  6. EFFEXOR [Concomitant]
     Active Substance: VENLAFAXINE HYDROCHLORIDE
  7. TRAZODONE [TRAZODONE HYDROCHLORIDE] [Concomitant]
  8. TAXOTERE [Suspect]
     Active Substance: DOCETAXEL
     Dosage: 123 MG, QOW
     Route: 042
     Dates: start: 20090708, end: 20090708
  9. PROPANOLOL [PROPRANOLOL] [Concomitant]
     Active Substance: PROPRANOLOL HYDROCHLORIDE

REACTIONS (2)
  - Psychological trauma [Unknown]
  - Alopecia [Recovering/Resolving]

NARRATIVE: CASE EVENT DATE: 20100108
